FAERS Safety Report 24157269 (Version 1)
Quarter: 2024Q3

REPORT INFORMATION
  Report Type: Spontaneous
  Country: US (occurrence: None)
  Receive Date: 20240730
  Receipt Date: 20240730
  Transmission Date: 20241016
  Serious: Yes (unspecified)
  Sender: Public
  Company Number: None

PATIENT
  Age: 36 Year
  Sex: Female

DRUGS (5)
  1. FOLLISTIM AQ [Suspect]
     Active Substance: FOLLITROPIN
     Indication: Infertility female
     Dosage: 150 UNITS QD
  2. LEUPROLIDE [Suspect]
     Active Substance: LEUPROLIDE
  3. GANIRELIX [Suspect]
     Active Substance: GANIRELIX
  4. NOVAREL [Suspect]
     Active Substance: CHORIOGONADOTROPIN ALFA
  5. MENOPUR [Suspect]
     Active Substance: FOLLITROPIN\LUTEINIZING HORMONE

REACTIONS (7)
  - Constipation [None]
  - Fatigue [None]
  - Abdominal distension [None]
  - Therapy cessation [None]
  - Dysuria [None]
  - Abdominal pain upper [None]
  - Diarrhoea [None]
